FAERS Safety Report 9728560 (Version 1)
Quarter: 2013Q4

REPORT INFORMATION
  Report Type: Spontaneous
  Country: JP (occurrence: None)
  Receive Date: 20131202
  Receipt Date: 20131202
  Transmission Date: 20140711
  Serious: Yes (Other)
  Sender: FDA-Public Use
  Company Number: SYM-2013-13062

PATIENT
  Age: 78 Year
  Sex: Male

DRUGS (3)
  1. FLUOROURACIL [Suspect]
     Indication: OESOPHAGEAL CARCINOMA
     Dosage: INTRAVENOUS (NOT OTHERWISE SPECIFIED)
     Route: 042
  2. TAXOTERE [Suspect]
     Indication: OESOPHAGEAL CARCINOMA
     Dosage: INTRAVENOUS (NOT OTHERWISE SPECIFIED)
     Route: 042
  3. SOLUTIONSFOR PARENTERAL NUTRITION (SOLUTIONS FOR PARENTERAL FOR PARENTERAL NUTRITION) [Concomitant]

REACTIONS (2)
  - Kounis syndrome [None]
  - Anaphylactic shock [None]
